FAERS Safety Report 9337057 (Version 1)
Quarter: 2013Q2

REPORT INFORMATION
  Report Type: Spontaneous
  Country: US (occurrence: US)
  Receive Date: 20130607
  Receipt Date: 20130607
  Transmission Date: 20140414
  Serious: Yes (Hospitalization, Other)
  Sender: FDA-Public Use
  Company Number: US-UCBSA-088151

PATIENT
  Age: 10 Year
  Sex: Male

DRUGS (6)
  1. VIMPAT [Suspect]
     Indication: CONVULSION
  2. KEPPRA [Suspect]
     Indication: CONVULSION
  3. TOPAMAX [Concomitant]
     Indication: CONVULSION
  4. KLONOPIN [Concomitant]
     Indication: CONVULSION
  5. DIASTAT [Concomitant]
     Indication: CONVULSION
  6. TRILEPTAL [Concomitant]
     Indication: CONVULSION

REACTIONS (8)
  - Psychotic disorder [Recovering/Resolving]
  - Hallucination [Recovering/Resolving]
  - Coeliac disease [Unknown]
  - Fear [Recovering/Resolving]
  - Disturbance in attention [Recovering/Resolving]
  - Apathy [Recovering/Resolving]
  - Sedation [Recovering/Resolving]
  - Drug ineffective [Recovered/Resolved]
